FAERS Safety Report 6038203-5 (Version None)
Quarter: 2009Q1

REPORT INFORMATION
  Report Type: 
  Country: None (occurrence: None)
  Receive Date: 20090115
  Receipt Date: 20090105
  Transmission Date: 20090719
  Serious: Yes (Death)
  Sender: FDA-Public Use
  Company Number: US-WYE-H07560209

PATIENT
  Age: 58 Year
  Sex: Male

DRUGS (7)
  1. IBUPROFEN [Suspect]
     Dosage: UNKNOWN
     Route: 048
     Dates: start: 20070101, end: 20070101
  2. VALPROIC ACID [Suspect]
     Dosage: UNKNOWN
     Route: 048
  3. CIMETIDINE [Suspect]
     Dosage: UNKNOWN
     Route: 048
  4. BENZTROPINE MESYLATE [Suspect]
  5. RISPERIDONE [Suspect]
     Dosage: UNKNOWN
     Route: 048
  6. TOPIRAMATE [Suspect]
     Dosage: UNKNOWN
     Route: 048
  7. CARBAMAZEPINE [Suspect]
     Dosage: UNKNOWN
     Route: 048

REACTIONS (1)
  - MEDICATION ERROR [None]
